FAERS Safety Report 26203133 (Version 1)
Quarter: 2025Q4

REPORT INFORMATION
  Report Type: Report from Study
  Country: EU (occurrence: EU)
  Receive Date: 20251226
  Receipt Date: 20251226
  Transmission Date: 20260119
  Serious: Yes (Death, Other)
  Sender: ROCHE
  Company Number: EU-ROCHE-10000338793

PATIENT

DRUGS (10)
  1. RITUXIMAB [Suspect]
     Active Substance: RITUXIMAB
     Indication: Central nervous system lymphoma
     Route: 042
  2. RITUXIMAB [Suspect]
     Active Substance: RITUXIMAB
     Indication: High-grade B-cell lymphoma
  3. DEXAMETHASONE [Suspect]
     Active Substance: DEXAMETHASONE
     Indication: Central nervous system lymphoma
  4. DEXAMETHASONE [Suspect]
     Active Substance: DEXAMETHASONE
     Indication: High-grade B-cell lymphoma
  5. ETOPOSIDE [Suspect]
     Active Substance: ETOPOSIDE
     Indication: Central nervous system lymphoma
  6. ETOPOSIDE [Suspect]
     Active Substance: ETOPOSIDE
     Indication: High-grade B-cell lymphoma
  7. IFOSFAMIDE [Suspect]
     Active Substance: IFOSFAMIDE
     Indication: Central nervous system lymphoma
  8. IFOSFAMIDE [Suspect]
     Active Substance: IFOSFAMIDE
     Indication: High-grade B-cell lymphoma
  9. CARBOPLATIN [Suspect]
     Active Substance: CARBOPLATIN
     Indication: Central nervous system lymphoma
     Route: 042
  10. CARBOPLATIN [Suspect]
     Active Substance: CARBOPLATIN
     Indication: High-grade B-cell lymphoma

REACTIONS (7)
  - Haematotoxicity [Unknown]
  - Neurotoxicity [Unknown]
  - Acute kidney injury [Unknown]
  - Cardiac failure [Fatal]
  - End stage renal disease [Unknown]
  - Sepsis [Fatal]
  - Infection [Fatal]
